FAERS Safety Report 9776974 (Version 1)
Quarter: 2013Q4

REPORT INFORMATION
  Report Type: Spontaneous
  Country: US (occurrence: US)
  Receive Date: 20131221
  Receipt Date: 20131221
  Transmission Date: 20140711
  Serious: No
  Sender: FDA-Public Use
  Company Number: US-B.I. PHARMACEUTICALS,INC./RIDGEFIELD-2013-BI-41361BP

PATIENT
  Sex: 0

DRUGS (1)
  1. JENTADUETO [Suspect]

REACTIONS (1)
  - Blood creatinine increased [Unknown]
